FAERS Safety Report 8765956 (Version 2)
Quarter: 2014Q3

REPORT INFORMATION
  Report Type: Spontaneous
  Country: SG (occurrence: SG)
  Receive Date: 20120904
  Receipt Date: 20140812
  Transmission Date: 20150326
  Serious: Yes (Other)
  Sender: FDA-Public Use
  Company Number: SG-WATSON-2012-14907

PATIENT
  Age: 20 Year
  Sex: Male
  Weight: 58 kg

DRUGS (2)
  1. CABERGOLINE (UNKNOWN) [Suspect]
     Active Substance: CABERGOLINE
     Dosage: 0.25 MG, 2/WEEK
     Route: 065
  2. CABERGOLINE (UNKNOWN) [Suspect]
     Active Substance: CABERGOLINE
     Indication: PROLACTINOMA
     Dosage: 0.5 MG, 2/WEEK
     Route: 065

REACTIONS (2)
  - Pituitary haemorrhage [Recovered/Resolved]
  - Secondary hypothyroidism [Recovered/Resolved]
